FAERS Safety Report 18781274 (Version 1)
Quarter: 2021Q1

REPORT INFORMATION
  Report Type: Spontaneous
  Country: US (occurrence: US)
  Receive Date: 20210124
  Receipt Date: 20210124
  Transmission Date: 20210419
  Serious: No
  Sender: FDA-Public Use
  Company Number: None

PATIENT
  Age: 84 Year
  Sex: Male
  Weight: 90 kg

DRUGS (13)
  1. ANORO ELLIPTA [Concomitant]
     Active Substance: UMECLIDINIUM BROMIDE\VILANTEROL TRIFENATATE
  2. PSYLLIUM SEED HUSKS [Concomitant]
  3. FLO?VENT [Concomitant]
  4. HYDROCHLOROTHIAZIDE. [Concomitant]
     Active Substance: HYDROCHLOROTHIAZIDE
  5. ATORVASTATIN [Concomitant]
     Active Substance: ATORVASTATIN
  6. COENZYME Q10 [Concomitant]
     Active Substance: DIETARY SUPPLEMENT\UBIDECARENONE
  7. METOPROLOL SUCCINATE. [Concomitant]
     Active Substance: METOPROLOL SUCCINATE
  8. LUTEIN [Concomitant]
     Active Substance: LUTEIN
  9. FLUTICASONE PROPIONATE NASAL SPRAY [Suspect]
     Active Substance: FLUTICASONE PROPIONATE
     Indication: PULMONARY CONGESTION
     Dosage: ?          QUANTITY:1 SPRAY(S);?
     Route: 055
     Dates: start: 20210107, end: 20210115
  10. LEVOTHYROXINE. [Concomitant]
     Active Substance: LEVOTHYROXINE
  11. MULTIPLE VITAMIN [Concomitant]
     Active Substance: VITAMINS
  12. SAW PALMETTO [Concomitant]
     Active Substance: HERBALS\SAW PALMETTO
  13. GINGER ROOT [Concomitant]
     Active Substance: GINGER

REACTIONS (5)
  - Headache [None]
  - Dry mouth [None]
  - Nasal dryness [None]
  - Dry eye [None]
  - Muscular weakness [None]

NARRATIVE: CASE EVENT DATE: 20210114
